FAERS Safety Report 8270121-4 (Version None)
Quarter: 2012Q2

REPORT INFORMATION
  Report Type: 
  Country: None (occurrence: None)
  Receive Date: 20120410
  Receipt Date: 20120402
  Transmission Date: 20120825
  Serious: Yes (Other)
  Sender: FDA-Public Use
  Company Number: PHHY2012BR029159

PATIENT
  Sex: Male
  Weight: 82 kg

DRUGS (5)
  1. CIPROFIBRATE [Concomitant]
     Indication: BLOOD CHOLESTEROL INCREASED
     Dosage: 1 TABLET A DAY
     Route: 048
  2. FINASTERIDE [Concomitant]
     Indication: PROSTATOMEGALY
     Dosage: 1 TABLET A DAY
     Route: 047
  3. TAMSULOSIN HCL [Concomitant]
     Indication: PROSTATOMEGALY
     Dosage: 1 TABLET A DAY
     Route: 048
  4. EXFORGE [Suspect]
     Indication: HYPERTENSION
     Dosage: 1 TABLET OF VALSARTAN AND 1 OF AMLODIPINE BESYLATE A DAY
     Route: 048
  5. EXFORGE [Suspect]
     Indication: HYPERTENSION
     Dosage: 1 TABLET (160/5MG) A DAY
     Route: 048

REACTIONS (2)
  - BLOOD PRESSURE INCREASED [None]
  - PROSTATOMEGALY [None]
